FAERS Safety Report 8882268 (Version 2)
Quarter: 2012Q4

REPORT INFORMATION
  Report Type: 
  Country: JP (occurrence: JP)
  Receive Date: 20121102
  Receipt Date: 20121109
  Transmission Date: 20130627
  Serious: Yes (Other)
  Sender: FDA-Public Use
  Company Number: JP-JNJFOC-20121013495

PATIENT
  Age: 8 None

DRUGS (3)
  1. INVEGA [Suspect]
     Indication: PRODUCT USED FOR UNKNOWN INDICATION
     Route: 048
  2. RISPERDAL [Suspect]
     Indication: SCHIZOPHRENIA
     Route: 048
  3. LEVOMEPROMAZINE MALEATE [Suspect]
     Indication: SCHIZOPHRENIA
     Route: 048
     Dates: end: 201208

REACTIONS (1)
  - White blood cell count decreased [Not Recovered/Not Resolved]
